FAERS Safety Report 8137297-0 (Version None)
Quarter: 2012Q1

REPORT INFORMATION
  Report Type: 
  Country: None (occurrence: None)
  Receive Date: 20120210
  Receipt Date: 20120202
  Transmission Date: 20120608
  Serious: Yes (Disabling)
  Sender: FDA-Public Use
  Company Number: OSCN-NO-1202S-0015

PATIENT

DRUGS (2)
  1. OMNISCAN [Suspect]
     Indication: PRODUCT USED FOR UNKNOWN INDICATION
     Dosage: SINGLE DOSE
     Dates: start: 20030113, end: 20030113
  2. OMNISCAN [Suspect]
     Indication: PRODUCT USED FOR UNKNOWN INDICATION
     Dosage: SINGLE DOSE
     Dates: start: 20050629, end: 20050629

REACTIONS (9)
  - PAIN IN EXTREMITY [None]
  - GAIT DISTURBANCE [None]
  - DECREASED APPETITE [None]
  - MUSCULAR WEAKNESS [None]
  - MOBILITY DECREASED [None]
  - NEPHROGENIC SYSTEMIC FIBROSIS [None]
  - ACTIVITIES OF DAILY LIVING IMPAIRED [None]
  - SLEEP DISORDER [None]
  - HYPOKINESIA [None]
